FAERS Safety Report 19770025 (Version 1)
Quarter: 2021Q3

REPORT INFORMATION
  Report Type: Spontaneous
  Country: US (occurrence: US)
  Receive Date: 20210901
  Receipt Date: 20210901
  Transmission Date: 20211014
  Serious: Yes (Other)
  Sender: FDA-Public Use
  Company Number: US-ASTRAZENECA-2021A703658

PATIENT
  Sex: Male

DRUGS (7)
  1. CABAZITAXEL [Concomitant]
     Active Substance: CABAZITAXEL
     Route: 065
  2. DOCETAXEL. [Concomitant]
     Active Substance: DOCETAXEL
     Route: 065
  3. PROVENGE [Concomitant]
     Active Substance: SIPULEUCEL-T
     Route: 065
  4. ZYTIGA [Concomitant]
     Active Substance: ABIRATERONE ACETATE
     Route: 065
  5. ADT [Concomitant]
     Active Substance: AMITRIPTYLINE HYDROCHLORIDE
     Route: 065
  6. OLAPARIB. [Suspect]
     Active Substance: OLAPARIB
     Indication: HORMONE-REFRACTORY PROSTATE CANCER
     Route: 048
  7. XOFIGO [Concomitant]
     Active Substance: RADIUM RA-223 DICHLORIDE
     Route: 065

REACTIONS (3)
  - Peripheral swelling [Unknown]
  - Treatment failure [Unknown]
  - Lymphadenopathy [Unknown]
